FAERS Safety Report 21602746 (Version 2)
Quarter: 2022Q4

REPORT INFORMATION
  Report Type: Spontaneous
  Country: US (occurrence: US)
  Receive Date: 20221116
  Receipt Date: 20221123
  Transmission Date: 20230113
  Serious: Yes (Other)
  Sender: FDA-Public Use
  Company Number: US-PFIZER INC-202201296988

PATIENT
  Sex: Female

DRUGS (18)
  1. DEPO-MEDROL [Suspect]
     Active Substance: METHYLPREDNISOLONE ACETATE
     Indication: Joint injury
     Dosage: UNK
     Dates: start: 20210511
  2. DEPO-MEDROL [Suspect]
     Active Substance: METHYLPREDNISOLONE ACETATE
     Indication: Arthritis
  3. HYMOVIS [HYALURONATE SODIUM] [Concomitant]
     Dosage: UNK
     Dates: start: 201812
  4. HYMOVIS [HYALURONATE SODIUM] [Concomitant]
     Dosage: UNK
     Dates: start: 20210121
  5. HYMOVIS [HYALURONATE SODIUM] [Concomitant]
     Dosage: UNK
     Dates: start: 20210311
  6. HYMOVIS [HYALURONATE SODIUM] [Concomitant]
     Dosage: UNK
     Dates: start: 20210318
  7. HYMOVIS [HYALURONATE SODIUM] [Concomitant]
     Dosage: UNK
     Dates: start: 20210826
  8. HYMOVIS [HYALURONATE SODIUM] [Concomitant]
     Dosage: UNK
     Dates: start: 20211202
  9. HYMOVIS [HYALURONATE SODIUM] [Concomitant]
     Dosage: UNK
     Dates: start: 20220309
  10. HYMOVIS [HYALURONATE SODIUM] [Concomitant]
     Dosage: UNK
     Dates: start: 20220609
  11. HYMOVIS [HYALURONATE SODIUM] [Concomitant]
     Dosage: UNK
     Dates: start: 20220915
  12. ZILRETTA [Concomitant]
     Active Substance: TRIAMCINOLONE ACETONIDE
     Dosage: UNK
     Dates: start: 201812
  13. ZILRETTA [Concomitant]
     Active Substance: TRIAMCINOLONE ACETONIDE
     Dosage: UNK
     Dates: start: 20210121
  14. ZILRETTA [Concomitant]
     Active Substance: TRIAMCINOLONE ACETONIDE
     Dosage: UNK
     Dates: start: 20210826
  15. ZILRETTA [Concomitant]
     Active Substance: TRIAMCINOLONE ACETONIDE
     Dosage: UNK
     Dates: start: 20211202
  16. ZILRETTA [Concomitant]
     Active Substance: TRIAMCINOLONE ACETONIDE
     Dosage: UNK
     Dates: start: 20220309
  17. ZILRETTA [Concomitant]
     Active Substance: TRIAMCINOLONE ACETONIDE
     Dosage: UNK
     Dates: start: 20220609
  18. ZILRETTA [Concomitant]
     Active Substance: TRIAMCINOLONE ACETONIDE
     Dosage: UNK
     Dates: start: 20220915

REACTIONS (7)
  - Diverticulitis [Unknown]
  - Drug ineffective [Unknown]
  - Headache [Recovered/Resolved]
  - Insomnia [Recovered/Resolved]
  - Erythema [Unknown]
  - Hot flush [Recovered/Resolved]
  - Flushing [Recovered/Resolved]

NARRATIVE: CASE EVENT DATE: 20210511
